FAERS Safety Report 17645959 (Version 1)
Quarter: 2020Q2

REPORT INFORMATION
  Report Type: Report from Study
  Country: None (occurrence: US)
  Receive Date: 20200408
  Receipt Date: 20200408
  Transmission Date: 20200713
  Serious: Yes (Hospitalization)
  Sender: FDA-Public Use
  Company Number: US-ABBVIE-20K-163-3248120-00

PATIENT
  Age: 53 Year
  Sex: Female

DRUGS (2)
  1. HUMIRA [Suspect]
     Active Substance: ADALIMUMAB
     Indication: PSORIATIC ARTHROPATHY
     Route: 058
     Dates: start: 201912, end: 201912
  2. HUMIRA [Suspect]
     Active Substance: ADALIMUMAB
     Route: 058
     Dates: start: 20200101, end: 2020

REACTIONS (22)
  - Blood potassium decreased [Unknown]
  - Injection site erythema [Recovering/Resolving]
  - Injection site swelling [Recovering/Resolving]
  - Abdominal pain [Unknown]
  - Headache [Unknown]
  - Renal disorder [Unknown]
  - Hyperhidrosis [Recovering/Resolving]
  - Arthralgia [Recovering/Resolving]
  - Vomiting [Unknown]
  - Swelling [Unknown]
  - Musculoskeletal pain [Unknown]
  - Peripheral swelling [Unknown]
  - Musculoskeletal stiffness [Unknown]
  - Influenza [Recovered/Resolved]
  - Injection site pain [Unknown]
  - Chest pain [Unknown]
  - Headache [Recovering/Resolving]
  - Muscle spasms [Unknown]
  - Musculoskeletal chest pain [Recovering/Resolving]
  - Musculoskeletal chest pain [Unknown]
  - Pain in extremity [Unknown]
  - Psoriasis [Unknown]

NARRATIVE: CASE EVENT DATE: 201912
